FAERS Safety Report 11798509 (Version 1)
Quarter: 2015Q4

REPORT INFORMATION
  Report Type: Spontaneous
  Country: US (occurrence: US)
  Receive Date: 20151203
  Receipt Date: 20151203
  Transmission Date: 20160305
  Serious: No
  Sender: FDA-Public Use
  Company Number: US-REGENERON PHARMACEUTICALS, INC.-2015-11809

PATIENT

DRUGS (6)
  1. COENZYME Q10 [Concomitant]
     Active Substance: UBIDECARENONE
     Dosage: UNK
  2. HYDROCODONE/APAP [Concomitant]
     Active Substance: ACETAMINOPHEN\HYDROCODONE BITARTRATE
     Dosage: UNK
  3. ASPIRIN                            /00002701/ [Concomitant]
     Active Substance: ASPIRIN
     Dosage: 81 MG MILLIGRAM(S), UNK
  4. PANTOPRAZOLE [Concomitant]
     Active Substance: PANTOPRAZOLE SODIUM
     Dosage: UNK
  5. EYLEA [Suspect]
     Active Substance: AFLIBERCEPT
     Indication: NEOVASCULAR AGE-RELATED MACULAR DEGENERATION
     Dosage: UNK, MONTHLY
     Route: 031
     Dates: start: 201407
  6. PRESERVISION [Concomitant]
     Active Substance: MINERALS\VITAMINS
     Dosage: UNK

REACTIONS (1)
  - Weight decreased [Unknown]

NARRATIVE: CASE EVENT DATE: 2014
